FAERS Safety Report 5151672-8 (Version None)
Quarter: 2006Q4

REPORT INFORMATION
  Report Type: 
  Country: None (occurrence: None)
  Receive Date: 20061109
  Receipt Date: 20061027
  Transmission Date: 20070319
  Serious: Yes (Other)
  Sender: FDA-Public Use
  Company Number: 2006-07-0609

PATIENT
  Age: 51 Year
  Sex: Male
  Weight: 66.2252 kg

DRUGS (7)
  1. PEG-INTRON [Suspect]
     Indication: HEPATITIS B
     Dosage: 96  MCG; QW; SC
     Route: 058
     Dates: start: 20060419, end: 20060718
  2. PEG-INTRON [Suspect]
     Indication: HEPATITIS C
     Dosage: 96  MCG; QW; SC
     Route: 058
     Dates: start: 20060419, end: 20060718
  3. REBETOL [Suspect]
     Indication: HEPATITIS B
     Dosage: 1000 MG; QD; PO
     Route: 048
     Dates: start: 20060419, end: 20060718
  4. REBETOL [Suspect]
     Indication: HEPATITIS C
     Dosage: 1000 MG; QD; PO
     Route: 048
     Dates: start: 20060419, end: 20060718
  5. DIAZEPAM [Concomitant]
  6. OXYCODONE HCL [Concomitant]
  7. PROMETHAZINE [Concomitant]

REACTIONS (12)
  - ANOREXIA [None]
  - BACK PAIN [None]
  - CYST [None]
  - EYE ABSCESS [None]
  - EYE HAEMORRHAGE [None]
  - EYE INFECTION [None]
  - GLAUCOMA [None]
  - INFLUENZA LIKE ILLNESS [None]
  - OPTIC DISC DISORDER [None]
  - RETINITIS [None]
  - RETINOPATHY HYPERTENSIVE [None]
  - WEIGHT DECREASED [None]
